FAERS Safety Report 7270705-6 (Version None)
Quarter: 2011Q1

REPORT INFORMATION
  Report Type: 
  Country: None (occurrence: None)
  Receive Date: 20110202
  Receipt Date: 20110126
  Transmission Date: 20110831
  Serious: Yes (Other)
  Sender: FDA-Public Use
  Company Number: B0696619A

PATIENT
  Sex: Male

DRUGS (6)
  1. LUPRAC [Concomitant]
     Dosage: 4MG PER DAY
     Route: 048
  2. TAKEPRON [Suspect]
     Route: 048
  3. DIOVAN [Concomitant]
     Route: 048
  4. AVOLVE [Suspect]
     Dosage: .5MG PER DAY
     Route: 048
     Dates: start: 20101014
  5. SERENACE [Suspect]
     Route: 048
  6. HARNAL D [Concomitant]
     Route: 048

REACTIONS (1)
  - PULMONARY OEDEMA [None]
